FAERS Safety Report 6573975-2 (Version None)
Quarter: 2010Q1

REPORT INFORMATION
  Report Type: 
  Country: None (occurrence: None)
  Receive Date: 20100208
  Receipt Date: 20100128
  Transmission Date: 20100710
  Serious: Yes (Hospitalization)
  Sender: FDA-Public Use
  Company Number: FR-JNJFOC-20090708885

PATIENT
  Age: 78 Year
  Sex: Female

DRUGS (5)
  1. DOXORUBICIN HCL [Suspect]
     Indication: BREAST CANCER METASTATIC
     Dosage: 2 CYCLES
     Route: 042
  2. DOXORUBICIN HCL [Suspect]
     Dosage: CYCLE 3
     Route: 042
  3. PROCORALAN [Concomitant]
     Route: 065
  4. ZOPICLONE [Concomitant]
     Route: 065
  5. MORPHINE [Concomitant]
     Route: 065

REACTIONS (4)
  - LUNG INFECTION [None]
  - MUCOSAL INFLAMMATION [None]
  - RENAL FAILURE [None]
  - URINARY TRACT INFECTION [None]
